FAERS Safety Report 25978070 (Version 4)
Quarter: 2025Q4

REPORT INFORMATION
  Report Type: Report from Study
  Country: EU (occurrence: EU)
  Receive Date: 20251030
  Receipt Date: 20251114
  Transmission Date: 20260118
  Serious: Yes (Hospitalization, Other)
  Sender: MERCK SHARP & DOHME LLC
  Company Number: EU-009507513-2342126

PATIENT
  Age: 52 Year
  Sex: Female
  Weight: 122 kg

DRUGS (17)
  1. WINREVAIR [Suspect]
     Active Substance: SOTATERCEPT-CSRK
     Indication: Pulmonary arterial hypertension
     Dosage: 0.7 MG/KG
     Dates: start: 202503
  2. WINREVAIR [Suspect]
     Active Substance: SOTATERCEPT-CSRK
     Dosage: 0.7 MG/KG
     Dates: start: 20251007
  3. WINREVAIR [Suspect]
     Active Substance: SOTATERCEPT-CSRK
     Dosage: 0.7 MG/KG
     Dates: start: 202504
  4. WINREVAIR [Suspect]
     Active Substance: SOTATERCEPT-CSRK
  5. APIXABAN [Concomitant]
     Active Substance: APIXABAN
     Indication: Myocardial ischaemia
  6. TADALAFIL [Concomitant]
     Active Substance: TADALAFIL
     Indication: Pulmonary arterial hypertension
     Dates: start: 202003
  7. OPSUMIT [Concomitant]
     Active Substance: MACITENTAN
     Indication: Pulmonary arterial hypertension
     Dates: start: 202209
  8. UPTRAVI [Concomitant]
     Active Substance: SELEXIPAG
     Indication: Pulmonary arterial hypertension
  9. Vetavis [Concomitant]
     Indication: Pulmonary arterial hypertension
     Route: 055
     Dates: start: 202311, end: 202508
  10. ALLOPURINOL [Concomitant]
     Active Substance: ALLOPURINOL
  11. ELIQUIS [Concomitant]
     Active Substance: APIXABAN
  12. LEVOTHYROXINE SODIUM [Concomitant]
     Active Substance: LEVOTHYROXINE SODIUM
  13. SPIRONOLACTONE [Concomitant]
     Active Substance: SPIRONOLACTONE
  14. TORSEMIDE [Concomitant]
     Active Substance: TORSEMIDE
  15. URSODIOL [Concomitant]
     Active Substance: URSODIOL
  16. PANTOPRAZOLE [Concomitant]
     Active Substance: PANTOPRAZOLE
  17. HEPARIN [Concomitant]
     Active Substance: HEPARIN SODIUM

REACTIONS (25)
  - Elsberg syndrome [Recovered/Resolved]
  - Spinal deformity [Unknown]
  - Paraesthesia [Recovering/Resolving]
  - Atelectasis [Unknown]
  - Genital hypoaesthesia [Not Recovered/Not Resolved]
  - Gastrointestinal infection [Recovered/Resolved]
  - Pulmonary congestion [Unknown]
  - Hypothyroidism [Unknown]
  - Pyramidal tract syndrome [Unknown]
  - Decreased vibratory sense [Unknown]
  - Cervical spinal stenosis [Unknown]
  - Bone disorder [Unknown]
  - Hypoaesthesia [Not Recovered/Not Resolved]
  - Intervertebral disc protrusion [Unknown]
  - Pleocytosis [Unknown]
  - Pleural effusion [Unknown]
  - Osteoporosis [Unknown]
  - Infertility female [Unknown]
  - Somatosensory evoked potentials abnormal [Unknown]
  - Hyporeflexia [Unknown]
  - Raynaud^s phenomenon [Unknown]
  - Atrioventricular block [Unknown]
  - Hyperlipidaemia [Unknown]
  - Conjunctivitis allergic [Unknown]
  - Drug ineffective [Unknown]

NARRATIVE: CASE EVENT DATE: 20250101
